FAERS Safety Report 13180758 (Version 1)
Quarter: 2017Q1

REPORT INFORMATION
  Report Type: Spontaneous
  Country: US (occurrence: US)
  Receive Date: 20170202
  Receipt Date: 20170202
  Transmission Date: 20170428
  Serious: No
  Sender: FDA-Public Use
  Company Number: US-SMITH AND NEPHEW, INC-2015SMT00659

PATIENT
  Age: 71 Year
  Sex: Male
  Weight: 102.4 kg

DRUGS (3)
  1. REGRANEX [Suspect]
     Active Substance: BECAPLERMIN
     Indication: DIABETIC FOOT
     Dosage: UNK, 1X/DAY
     Route: 061
     Dates: start: 20151022
  2. LANTUS [Concomitant]
     Active Substance: INSULIN GLARGINE
     Dosage: UNK
  3. INSULIN - REGULAR HUMAN [Concomitant]
     Dosage: 100 U, UNK

REACTIONS (3)
  - Bloody discharge [Unknown]
  - Wound complication [Unknown]
  - Blister rupture [Unknown]

NARRATIVE: CASE EVENT DATE: 201512
